FAERS Safety Report 8184861-9 (Version None)
Quarter: 2012Q1

REPORT INFORMATION
  Report Type: 
  Country: None (occurrence: None)
  Receive Date: 20120305
  Receipt Date: 20120301
  Transmission Date: 20120608
  Serious: Yes (Life-Threatening)
  Sender: FDA-Public Use
  Company Number: NZ-B.I. PHARMACEUTICALS,INC./RIDGEFIELD-2011-AU-01725AU

PATIENT
  Sex: Female
  Weight: 52 kg

DRUGS (5)
  1. FUROSEMIDE [Concomitant]
     Dosage: 120 MG
  2. QUINAPRIL [Concomitant]
     Dosage: 120 MG
  3. ISOSORBIDE DINITRATE [Concomitant]
     Dosage: 120 MG
  4. METOPROLOL SUCCINATE [Concomitant]
     Dosage: 190 MG
  5. PRADAXA [Suspect]
     Dosage: 220 MG
     Dates: start: 20110725, end: 20110823

REACTIONS (2)
  - HAEMOPTYSIS [None]
  - DYSPNOEA [None]
